FAERS Safety Report 4575697-6 (Version None)
Quarter: 2005Q1

REPORT INFORMATION
  Report Type: 
  Country: None (occurrence: None)
  Receive Date: 20050128
  Receipt Date: 20050128
  Transmission Date: 20050727
  Serious: Yes (Hospitalization)
  Sender: FDA-Public Use
  Company Number: None

PATIENT
  Sex: Male
  Weight: 15.1 kg

DRUGS (6)
  1. NEUPOGEN [Suspect]
     Indication: CHEMOTHERAPY
     Dosage: 75 MCG SUBQ EVERYDAY
     Route: 058
     Dates: start: 20050124
  2. NEUPOGEN [Suspect]
     Indication: WHITE BLOOD CELL COUNT DECREASED
     Dosage: 75 MCG SUBQ EVERYDAY
     Route: 058
     Dates: start: 20050124
  3. ETOPOSIDE [Concomitant]
  4. CYCLOPHOSPHAMIDE [Concomitant]
  5. VINCRISTINE [Concomitant]
  6. BLEOMYCIN [Concomitant]

REACTIONS (8)
  - COLD SWEAT [None]
  - DEPRESSED LEVEL OF CONSCIOUSNESS [None]
  - DYSSTASIA [None]
  - FALL [None]
  - HYPOTENSION [None]
  - HYPOTONIA [None]
  - POSTICTAL STATE [None]
  - VOMITING [None]
